FAERS Safety Report 10622551 (Version 3)
Quarter: 2015Q2

REPORT INFORMATION
  Report Type: Spontaneous
  Country: JP (occurrence: JP)
  Receive Date: 20141203
  Receipt Date: 20150413
  Transmission Date: 20150821
  Serious: Yes (Death, Life-Threatening, Disabling)
  Sender: FDA-Public Use
  Company Number: JP-BRISTOL-MYERS SQUIBB COMPANY-21401179

PATIENT
  Age: 74 Year
  Sex: Male

DRUGS (2)
  1. ERBITUX [Suspect]
     Active Substance: CETUXIMAB
     Dosage: 300 MG, QWK
     Route: 041
     Dates: start: 20140728
  2. ERBITUX [Suspect]
     Active Substance: CETUXIMAB
     Indication: OROPHARYNGEAL CANCER
     Dosage: 500 MG, QWK
     Route: 041
     Dates: start: 20140630, end: 20140630

REACTIONS (6)
  - Pain [Unknown]
  - Hepatic function abnormal [Not Recovered/Not Resolved]
  - Interstitial lung disease [Fatal]
  - Dehydration [Not Recovered/Not Resolved]
  - Hypoalbuminaemia [Not Recovered/Not Resolved]
  - Anaemia [Not Recovered/Not Resolved]

NARRATIVE: CASE EVENT DATE: 20140804
